FAERS Safety Report 5323973-1 (Version None)
Quarter: 2007Q2

REPORT INFORMATION
  Report Type: 
  Country: None (occurrence: None)
  Receive Date: 20070514
  Receipt Date: 20070503
  Transmission Date: 20071010
  Serious: Yes (Other)
  Sender: FDA-Public Use
  Company Number: SI-MERCK-0412HUN00017

PATIENT
  Age: 46 Month
  Sex: Female
  Weight: 15 kg

DRUGS (2)
  1. SINGULAIR [Suspect]
     Indication: ASTHMA
     Route: 048
     Dates: start: 20041027, end: 20041111
  2. FLUTICASONE PROPIONATE [Concomitant]
     Route: 065
     Dates: start: 20030101

REACTIONS (2)
  - HALLUCINATIONS, MIXED [None]
  - TIC [None]
